FAERS Safety Report 5305918-3 (Version None)
Quarter: 2007Q2

REPORT INFORMATION
  Report Type: 
  Country: None (occurrence: None)
  Receive Date: 20070424
  Receipt Date: 20070419
  Transmission Date: 20071010
  Serious: Yes (Other)
  Sender: FDA-Public Use
  Company Number: JP-JPN-A200701892

PATIENT
  Sex: Female

DRUGS (3)
  1. PAXIL [Suspect]
     Indication: PANIC DISORDER
     Route: 048
  2. PAXIL [Suspect]
     Dosage: 30MG PER DAY
     Route: 048
  3. PAXIL [Suspect]
     Dosage: 20MG PER DAY
     Route: 048

REACTIONS (2)
  - LOGORRHOEA [None]
  - MANIA [None]
